FAERS Safety Report 5897017-7 (Version None)
Quarter: 2008Q3

REPORT INFORMATION
  Report Type: 
  Country: None (occurrence: None)
  Receive Date: 20080924
  Receipt Date: 20080130
  Transmission Date: 20090109
  Serious: Yes (Hospitalization)
  Sender: FDA-Public Use
  Company Number: US-ASTRAZENECA-2008UW00656

PATIENT
  Age: 808 Month
  Sex: Female

DRUGS (4)
  1. SEROQUEL [Suspect]
     Indication: BIPOLAR I DISORDER
     Route: 048
  2. SEROQUEL [Suspect]
     Route: 048
  3. MYSOLINE [Concomitant]
     Indication: TREMOR
  4. LITHIUM CARBONATE [Concomitant]
     Dates: end: 20071101

REACTIONS (1)
  - MANIA [None]
